FAERS Safety Report 6930673-0 (Version None)
Quarter: 2010Q3

REPORT INFORMATION
  Report Type: 
  Country: None (occurrence: None)
  Receive Date: 20100809
  Receipt Date: 20091202
  Transmission Date: 20110219
  Serious: No
  Sender: FDA-Public Use
  Company Number: US-001223

PATIENT
  Sex: Male
  Weight: 268 kg

DRUGS (3)
  1. DEGARELIX (240 MG, 80 MG) [Suspect]
     Indication: PROSTATE CANCER
     Dosage: 240 MG 1X/MONTH SUBCUTANEOUS), (80 MG 1X/MONTH SUBCUTANEUOUS)
     Route: 058
     Dates: start: 20090601, end: 20090601
  2. DEGARELIX (240 MG, 80 MG) [Suspect]
     Indication: PROSTATE CANCER
     Dosage: 240 MG 1X/MONTH SUBCUTANEOUS), (80 MG 1X/MONTH SUBCUTANEUOUS)
     Route: 058
     Dates: start: 20090803
  3. TYLENOL (CAPLET) [Concomitant]

REACTIONS (2)
  - PROSTATIC SPECIFIC ANTIGEN INCREASED [None]
  - TENDONITIS [None]
